FAERS Safety Report 12613516 (Version 1)
Quarter: 2016Q3

REPORT INFORMATION
  Report Type: Report from Study
  Country: JP (occurrence: JP)
  Receive Date: 20160802
  Receipt Date: 20160802
  Transmission Date: 20161109
  Serious: Yes (Other)
  Sender: FDA-Public Use
  Company Number: JP-RECORDATI RARE DISEASES-JP-R13005-16-00196

PATIENT
  Sex: Female

DRUGS (1)
  1. NEOPROFEN [Suspect]
     Active Substance: IBUPROFEN LYSINE
     Indication: PATENT DUCTUS ARTERIOSUS
     Route: 042
     Dates: start: 20160509, end: 20160511

REACTIONS (5)
  - Dermatitis [Recovered/Resolved]
  - Hypoglycaemia neonatal [Recovered/Resolved]
  - Upper gastrointestinal haemorrhage [Recovered/Resolved]
  - Infantile apnoea [Recovering/Resolving]
  - Hyperbilirubinaemia neonatal [Not Recovered/Not Resolved]

NARRATIVE: CASE EVENT DATE: 20160510
